FAERS Safety Report 11492159 (Version 1)
Quarter: 2015Q3

REPORT INFORMATION
  Report Type: Spontaneous
  Country: FR (occurrence: FR)
  Receive Date: 20150910
  Receipt Date: 20150910
  Transmission Date: 20151125
  Serious: Yes (Hospitalization)
  Sender: FDA-Public Use
  Company Number: PHHY2015FR107708

PATIENT
  Age: 70 Year
  Sex: Female

DRUGS (6)
  1. ETOPOSIDE TEVA [Suspect]
     Active Substance: ETOPOSIDE
     Indication: PRODUCT USED FOR UNKNOWN INDICATION
     Dosage: 100 MG, PRN
     Route: 065
     Dates: start: 201505, end: 201505
  2. CYTARABIN SANDOZ [Concomitant]
     Indication: CHEMOTHERAPY
     Dosage: 2000 MG/M2, PRN
     Route: 065
     Dates: start: 20150506, end: 20150506
  3. METHOTREXATE (METHOTREXATE SODIUM) [Concomitant]
     Active Substance: METHOTREXATE SODIUM
     Indication: CHEMOTHERAPY
     Dosage: 3000 MG/M2, PRN
     Route: 065
     Dates: start: 20150505, end: 20150505
  4. CALCIUM FOLINAT [Concomitant]
     Active Substance: LEUCOVORIN CALCIUM
     Indication: PRODUCT USED FOR UNKNOWN INDICATION
  5. CARBOPLATIN HOSPIRA [Suspect]
     Active Substance: CARBOPLATIN
     Indication: PRODUCT USED FOR UNKNOWN INDICATION
     Dosage: 420 MG, PRN
     Route: 065
     Dates: start: 201505, end: 201505
  6. VANCOMYCIN SANDOZ [Suspect]
     Active Substance: VANCOMYCIN
     Indication: FEBRILE BONE MARROW APLASIA
     Route: 065
     Dates: start: 201505

REACTIONS (2)
  - Melaena [Recovered/Resolved]
  - Multi-organ failure [Recovered/Resolved]

NARRATIVE: CASE EVENT DATE: 201505
